FAERS Safety Report 12513259 (Version 1)
Quarter: 2016Q2

REPORT INFORMATION
  Report Type: Spontaneous
  Country: US (occurrence: None)
  Receive Date: 20160629
  Receipt Date: 20160629
  Transmission Date: 20160815
  Serious: Yes (Other)
  Sender: FDA-Public Use
  Company Number: None

PATIENT
  Age: 72 Year
  Sex: Female
  Weight: 70.31 kg

DRUGS (12)
  1. METOPROLOL. [Concomitant]
     Active Substance: METOPROLOL
  2. VITAMIN D3 [Concomitant]
     Active Substance: CHOLECALCIFEROL
  3. ULTIMATE OMEGA-D3 [Concomitant]
  4. LOSARTAN. [Concomitant]
     Active Substance: LOSARTAN
  5. ESCITALOPRAM [Concomitant]
     Active Substance: ESCITALOPRAM OXALATE
  6. RANEXA [Suspect]
     Active Substance: RANOLAZINE
     Indication: ANGINA PECTORIS
     Dosage: 51 TABLET(S) TWICE A DAY TAKEN BY MOUTH
     Route: 048
     Dates: start: 20160430, end: 20160525
  7. SYNTHROID [Concomitant]
     Active Substance: LEVOTHYROXINE SODIUM
  8. GLUCOSAMINE + MSM [Concomitant]
  9. VITAMIN CODE (MULTI-VITAMIN) [Concomitant]
  10. COQ10 [Concomitant]
     Active Substance: UBIDECARENONE
  11. BONE STRENGTHENER [Concomitant]
     Active Substance: UNSPECIFIED INGREDIENT
  12. ATORVASTATIN [Concomitant]
     Active Substance: ATORVASTATIN

REACTIONS (6)
  - Drug interaction [None]
  - Malaise [None]
  - Insomnia [None]
  - Urinary tract infection [None]
  - Hyperhidrosis [None]
  - Constipation [None]

NARRATIVE: CASE EVENT DATE: 20160504
